FAERS Safety Report 10931166 (Version 2)
Quarter: 2015Q2

REPORT INFORMATION
  Report Type: Spontaneous
  Country: US (occurrence: US)
  Receive Date: 20150319
  Receipt Date: 20150403
  Transmission Date: 20150821
  Serious: No
  Sender: FDA-Public Use
  Company Number: US-PFIZER INC-2015091140

PATIENT
  Sex: Male

DRUGS (1)
  1. CADUET [Suspect]
     Active Substance: AMLODIPINE BESYLATE\ATORVASTATIN CALCIUM
     Dosage: UNK

REACTIONS (4)
  - Speech disorder [Unknown]
  - Malaise [Unknown]
  - Bronchitis [Unknown]
  - Influenza [Unknown]

NARRATIVE: CASE EVENT DATE: 20150306
